FAERS Safety Report 8045132 (Version 2)
Quarter: 2012Q4

REPORT INFORMATION
  Report Type: Report from Study
  Country: ES (occurrence: ES)
  Receive Date: 20110720
  Receipt Date: 20120921
  Transmission Date: 20130627
  Serious: Yes (Hospitalization)
  Sender: FDA-Public Use
  Company Number: PHHO2011ES10798

PATIENT
  Age: 60 Year
  Sex: Male
  Weight: 75 kg

DRUGS (7)
  1. TIOTROPIUM [Suspect]
     Indication: CHRONIC OBSTRUCTIVE PULMONARY DISEASE
     Dosage: 18 ug, QD
     Dates: start: 20110414
  2. FLUMIL FORTE [Concomitant]
     Indication: CHRONIC OBSTRUCTIVE PULMONARY DISEASE
     Dosage: 500 mg, ONCE/SINGLE
     Route: 048
     Dates: start: 200707
  3. PULMICORT TURBUHALER [Concomitant]
     Indication: CHRONIC OBSTRUCTIVE PULMONARY DISEASE
     Dosage: 400 ug, BID
     Dates: start: 20110327
  4. PLAVIX [Concomitant]
     Indication: SUPRAVENTRICULAR TACHYCARDIA
     Dosage: 75 mg, ONCE/SINGLE
     Route: 048
     Dates: start: 201011
  5. APOCARD [Concomitant]
     Indication: SUPRAVENTRICULAR TACHYCARDIA
     Dosage: 150 mg, ONCE/SINGLE
     Route: 048
     Dates: start: 20080228
  6. EMCONCOR COR [Concomitant]
     Indication: HYPERTENSION
     Dosage: 5 mg, ONCE/SINGLE
     Route: 048
     Dates: start: 2009
  7. SECALIP [Concomitant]
     Indication: HYPERLIPIDAEMIA
     Dosage: UNK
     Route: 048
     Dates: start: 20101008

REACTIONS (2)
  - Angina pectoris [Recovered/Resolved]
  - Concomitant disease progression [Recovered/Resolved]
